FAERS Safety Report 6516426-6 (Version None)
Quarter: 2009Q4

REPORT INFORMATION
  Report Type: 
  Country: None (occurrence: None)
  Receive Date: 20091223
  Receipt Date: 20091214
  Transmission Date: 20100525
  Serious: Yes (Other)
  Sender: FDA-Public Use
  Company Number: B0617326A

PATIENT
  Age: 23 Year
  Sex: Male

DRUGS (6)
  1. EPZICOM [Suspect]
     Indication: HIV INFECTION
     Route: 048
  2. LEXIVA [Suspect]
     Indication: HIV INFECTION
     Route: 048
  3. RETROVIR [Suspect]
     Indication: HIV INFECTION
     Route: 048
  4. EPIVIR [Suspect]
     Indication: HIV INFECTION
     Route: 048
  5. AZIDOTHYMIDINE [Suspect]
     Indication: HIV INFECTION
     Route: 065
  6. PREDNISOLONE [Concomitant]
     Dosage: 5MG PER DAY

REACTIONS (5)
  - DRUG HYPERSENSITIVITY [None]
  - ERYTHEMA [None]
  - PRURITUS [None]
  - PYREXIA [None]
  - RASH [None]
